FAERS Safety Report 22286361 (Version 3)
Quarter: 2023Q2

REPORT INFORMATION
  Report Type: Spontaneous
  Country: CA (occurrence: CA)
  Receive Date: 20230505
  Receipt Date: 20230511
  Transmission Date: 20230721
  Serious: Yes (Other)
  Sender: FDA-Public Use
  Company Number: CA-CELLTRION INC.-2023CA005356

PATIENT

DRUGS (2)
  1. INFLECTRA [Suspect]
     Active Substance: INFLIXIMAB-DYYB
     Indication: Crohn^s disease
     Dosage: 5 MG/KG (300 MG), EVERY 6 WEEK
     Route: 042
     Dates: start: 20230410
  2. INFLECTRA [Suspect]
     Active Substance: INFLIXIMAB-DYYB
     Dosage: 5 MG/KG (300 MG), EVERY 6 WEEK
     Route: 042
     Dates: start: 20230410

REACTIONS (6)
  - Rectal abscess [Unknown]
  - Crohn^s disease [Not Recovered/Not Resolved]
  - Migraine [Unknown]
  - Fatigue [Unknown]
  - Bowel movement irregularity [Not Recovered/Not Resolved]
  - Off label use [Unknown]

NARRATIVE: CASE EVENT DATE: 20230401
